FAERS Safety Report 25853604 (Version 1)
Quarter: 2025Q3

REPORT INFORMATION
  Report Type: Spontaneous
  Country: CA (occurrence: CA)
  Receive Date: 20250926
  Receipt Date: 20250926
  Transmission Date: 20251021
  Serious: Yes (Death, Life-Threatening, Hospitalization, Other)
  Sender: SANDOZ
  Company Number: CA-SANDOZ-SDZ2025CA070809

PATIENT
  Age: 6 Day

DRUGS (37)
  1. AMPHOTERICIN B [Suspect]
     Active Substance: AMPHOTERICIN B
     Indication: Bacillus infection
     Route: 065
  2. AMPHOTERICIN B [Suspect]
     Active Substance: AMPHOTERICIN B
     Indication: Septic shock
     Route: 065
  3. AMPHOTERICIN B [Suspect]
     Active Substance: AMPHOTERICIN B
     Indication: Antibiotic therapy
  4. AMPICILLIN [Suspect]
     Active Substance: AMPICILLIN
     Indication: Septic shock
     Route: 042
  5. AMPICILLIN [Suspect]
     Active Substance: AMPICILLIN
     Indication: Antibiotic therapy
     Route: 065
  6. AMPICILLIN [Suspect]
     Active Substance: AMPICILLIN
     Indication: Bacillus infection
     Route: 065
  7. AMPICILLIN [Suspect]
     Active Substance: AMPICILLIN
     Indication: Amniotic cavity infection
  8. AMPICILLIN [Suspect]
     Active Substance: AMPICILLIN
     Indication: Antibiotic prophylaxis
  9. DEXAMETHASONE SODIUM PHOSPHATE [Suspect]
     Active Substance: DEXAMETHASONE SODIUM PHOSPHATE
     Indication: Cholestasis
     Route: 065
  10. DEXAMETHASONE SODIUM PHOSPHATE [Suspect]
     Active Substance: DEXAMETHASONE SODIUM PHOSPHATE
     Indication: Chronic respiratory disease
     Route: 065
  11. FLUCONAZOLE [Suspect]
     Active Substance: FLUCONAZOLE
     Indication: Bacillus infection
     Route: 065
  12. FLUCONAZOLE [Suspect]
     Active Substance: FLUCONAZOLE
     Indication: Septic shock
     Route: 065
  13. FLUCONAZOLE [Suspect]
     Active Substance: FLUCONAZOLE
     Indication: Antibiotic therapy
  14. MEROPENEM [Suspect]
     Active Substance: MEROPENEM
     Indication: Septic shock
     Route: 042
  15. MEROPENEM [Suspect]
     Active Substance: MEROPENEM
     Indication: Antibiotic therapy
     Route: 065
  16. MEROPENEM [Suspect]
     Active Substance: MEROPENEM
     Indication: Bacillus infection
     Route: 065
  17. PIPERACILLIN AND TAZOBACTAM [Suspect]
     Active Substance: PIPERACILLIN SODIUM\TAZOBACTAM SODIUM
     Indication: Bacillus infection
     Route: 065
  18. PIPERACILLIN AND TAZOBACTAM [Suspect]
     Active Substance: PIPERACILLIN SODIUM\TAZOBACTAM SODIUM
     Indication: Septic shock
     Route: 065
  19. PIPERACILLIN AND TAZOBACTAM [Suspect]
     Active Substance: PIPERACILLIN SODIUM\TAZOBACTAM SODIUM
     Indication: Antibiotic therapy
  20. SULFAMETHOXAZOLE AND TRIMETHOPRIM [Suspect]
     Active Substance: SULFAMETHOXAZOLE\TRIMETHOPRIM
     Indication: Antibiotic therapy
     Route: 065
  21. SULFAMETHOXAZOLE AND TRIMETHOPRIM [Suspect]
     Active Substance: SULFAMETHOXAZOLE\TRIMETHOPRIM
     Indication: Bacillus infection
     Route: 065
  22. SULFAMETHOXAZOLE AND TRIMETHOPRIM [Suspect]
     Active Substance: SULFAMETHOXAZOLE\TRIMETHOPRIM
     Indication: Septic shock
     Route: 065
  23. SULFATRIM [Suspect]
     Active Substance: SULFAMETHOXAZOLE\TRIMETHOPRIM
     Indication: Septic shock
     Route: 065
  24. SULFATRIM [Suspect]
     Active Substance: SULFAMETHOXAZOLE\TRIMETHOPRIM
     Indication: Antibiotic therapy
  25. SULFATRIM [Suspect]
     Active Substance: SULFAMETHOXAZOLE\TRIMETHOPRIM
     Indication: Bacillus infection
  26. TOBRAMYCIN SULFATE [Suspect]
     Active Substance: TOBRAMYCIN SULFATE
     Indication: Antibiotic therapy
     Route: 065
  27. TOBRAMYCIN SULFATE [Suspect]
     Active Substance: TOBRAMYCIN SULFATE
     Indication: Bacillus infection
     Route: 065
  28. TOBRAMYCIN SULFATE [Suspect]
     Active Substance: TOBRAMYCIN SULFATE
     Indication: Septic shock
     Route: 065
  29. TOBRAMYCIN SULFATE [Suspect]
     Active Substance: TOBRAMYCIN SULFATE
     Indication: Amniotic cavity infection
  30. TOBRAMYCIN SULFATE [Suspect]
     Active Substance: TOBRAMYCIN SULFATE
     Indication: Antibiotic prophylaxis
  31. VANCOMYCIN HYDROCHLORIDE [Suspect]
     Active Substance: VANCOMYCIN HYDROCHLORIDE
     Indication: Bacillus infection
     Route: 065
  32. VANCOMYCIN HYDROCHLORIDE [Suspect]
     Active Substance: VANCOMYCIN HYDROCHLORIDE
     Indication: Septic shock
     Route: 065
  33. VANCOMYCIN HYDROCHLORIDE [Suspect]
     Active Substance: VANCOMYCIN HYDROCHLORIDE
     Indication: Amniotic cavity infection
  34. VANCOMYCIN HYDROCHLORIDE [Suspect]
     Active Substance: VANCOMYCIN HYDROCHLORIDE
     Indication: Antibiotic prophylaxis
  35. VANCOMYCIN HYDROCHLORIDE [Suspect]
     Active Substance: VANCOMYCIN HYDROCHLORIDE
     Indication: Antibiotic therapy
  36. DEXAMETHASONE [Concomitant]
     Active Substance: DEXAMETHASONE
     Indication: Cholestasis
     Dosage: 0.15 MG/KG (1 EVERY 1 DAYS)
     Route: 014
  37. DEXAMETHASONE [Concomitant]
     Active Substance: DEXAMETHASONE
     Indication: Bronchopulmonary dysplasia

REACTIONS (4)
  - Respiratory disorder [Fatal]
  - Infection [Fatal]
  - Drug ineffective [Fatal]
  - Off label use [Fatal]
